FAERS Safety Report 7990023-8 (Version None)
Quarter: 2011Q4

REPORT INFORMATION
  Report Type: 
  Country: None (occurrence: None)
  Receive Date: 20111219
  Receipt Date: 20110429
  Transmission Date: 20120403
  Serious: No
  Sender: FDA-Public Use
  Company Number: US-ASTRAZENECA-2011SE24809

PATIENT
  Age: 89 Year
  Sex: Female
  Weight: 51.7 kg

DRUGS (12)
  1. NIFEDIPINE [Concomitant]
  2. LOVAZA [Concomitant]
  3. LECITHIN [Concomitant]
  4. VITAMIN AND CALCIUM SUPPLIMENTS [Concomitant]
  5. CRESTOR [Suspect]
     Indication: HYPERCHOLESTEROLAEMIA
     Route: 048
     Dates: start: 20110426
  6. PLAVIX [Concomitant]
  7. CRESTOR [Suspect]
     Indication: HYPERTRIGLYCERIDAEMIA
     Route: 048
     Dates: start: 20110426
  8. GLIPIZIDE [Concomitant]
  9. METFORMIN HCL [Concomitant]
  10. LEVOTHYROXINE SODIUM [Concomitant]
  11. CONDROITIN [Concomitant]
  12. SIMVASTATIN [Concomitant]

REACTIONS (2)
  - MUSCLE SPASMS [None]
  - WRONG TECHNIQUE IN DRUG USAGE PROCESS [None]
